FAERS Safety Report 9917753 (Version 2)
Quarter: 2014Q2

REPORT INFORMATION
  Report Type: Spontaneous
  Country: US (occurrence: US)
  Receive Date: 20140221
  Receipt Date: 20140411
  Transmission Date: 20141212
  Serious: Yes (Hospitalization, Other)
  Sender: FDA-Public Use
  Company Number: US-ABBVIE-14P-163-1202533-00

PATIENT
  Age: 55 Year
  Sex: Male
  Weight: 99.88 kg

DRUGS (1)
  1. HUMIRA [Suspect]
     Indication: COLITIS ULCERATIVE
     Route: 058
     Dates: start: 201301

REACTIONS (5)
  - Paradoxical drug reaction [Recovered/Resolved]
  - Malignant melanoma stage I [Recovered/Resolved]
  - Psoriasis [Recovered/Resolved]
  - Nephrolithiasis [Recovered/Resolved]
  - Deep vein thrombosis [Unknown]
